FAERS Safety Report 18658501 (Version 4)
Quarter: 2021Q2

REPORT INFORMATION
  Report Type: Spontaneous
  Country: GB (occurrence: GB)
  Receive Date: 20201224
  Receipt Date: 20210625
  Transmission Date: 20210717
  Serious: Yes (Other)
  Sender: FDA-Public Use
  Company Number: GB-BIOVITRUM-2020GB7871

PATIENT
  Age: 52 Year
  Sex: Female

DRUGS (4)
  1. VITAMIN D [Concomitant]
     Active Substance: VITAMIN D NOS
  2. ORFADIN [Suspect]
     Active Substance: NITISINONE
     Indication: ALKAPTONURIA
     Dates: start: 2014
  3. ADCAL D3 [Concomitant]
     Active Substance: CALCIUM CARBONATE\CHOLECALCIFEROL
  4. FULTIUM D3 [Concomitant]
     Active Substance: CHOLECALCIFEROL

REACTIONS (3)
  - Amino acid level increased [Unknown]
  - Cataract [Unknown]
  - Lenticular opacities [Unknown]

NARRATIVE: CASE EVENT DATE: 2014
